FAERS Safety Report 10966591 (Version 1)
Quarter: 2015Q1

REPORT INFORMATION
  Report Type: Spontaneous
  Country: US (occurrence: None)
  Receive Date: 20150327
  Receipt Date: 20150327
  Transmission Date: 20150721
  Serious: Yes (Disabling, Other)
  Sender: FDA-Public Use
  Company Number: None

PATIENT
  Age: 52 Year
  Sex: Male
  Weight: 111.13 kg

DRUGS (7)
  1. GABAPENTIN 300 MG PFIZER [Suspect]
     Active Substance: GABAPENTIN
     Indication: MUSCULOSKELETAL PAIN
     Dosage: 2 PILLS TAKEN BY MOUTH
     Route: 048
     Dates: start: 20090715, end: 20090915
  2. LANTUS [Concomitant]
     Active Substance: INSULIN GLARGINE
  3. VIT. E [Concomitant]
  4. MORPHINE [Concomitant]
     Active Substance: MORPHINE
  5. GABAPENTIN 300 MG PFIZER [Suspect]
     Active Substance: GABAPENTIN
     Indication: SLEEP DISORDER THERAPY
     Dosage: 2 PILLS TAKEN BY MOUTH
     Route: 048
     Dates: start: 20090715, end: 20090915
  6. ADDERALL [Concomitant]
     Active Substance: AMPHETAMINE ASPARTATE\AMPHETAMINE SULFATE\DEXTROAMPHETAMINE SACCHARATE\DEXTROAMPHETAMINE SULFATE
  7. CPAP MACHINE [Concomitant]

REACTIONS (4)
  - Dissociation [None]
  - Feeling abnormal [None]
  - Thirst [None]
  - Type 2 diabetes mellitus [None]

NARRATIVE: CASE EVENT DATE: 20090914
